FAERS Safety Report 9714281 (Version 2)
Quarter: 2013Q4

REPORT INFORMATION
  Report Type: Spontaneous
  Country: US (occurrence: US)
  Receive Date: 20131126
  Receipt Date: 20131126
  Transmission Date: 20140711
  Serious: No
  Sender: FDA-Public Use
  Company Number: US-GILEAD-2008-0018908

PATIENT
  Sex: Female
  Weight: 57.61 kg

DRUGS (27)
  1. LETAIRIS [Suspect]
     Indication: PULMONARY ARTERIAL HYPERTENSION
     Route: 048
     Dates: start: 20080214
  2. REVATIO [Concomitant]
  3. BUMEX [Concomitant]
  4. LISINOPRIL [Concomitant]
  5. NORVASC [Concomitant]
  6. SYNTHROID [Concomitant]
  7. AZATHIOPRINE [Concomitant]
  8. ACTONEL [Concomitant]
  9. FISH OIL [Concomitant]
  10. MEDROL [Concomitant]
  11. AMBIEN [Concomitant]
  12. BENADRYL [Concomitant]
  13. IRON [Concomitant]
  14. PROTONIX [Concomitant]
  15. NASACORT [Concomitant]
  16. METHOTREXATE [Concomitant]
  17. PREDNISONE [Concomitant]
  18. CLONAZEPAM [Concomitant]
  19. FOLIC ACID [Concomitant]
  20. MAGNESIUM CITRATE [Concomitant]
  21. MIRAPEX [Concomitant]
  22. ASPIRIN [Concomitant]
  23. MULTIVITAMIN [Concomitant]
  24. GLUCOSAMINE CHONDROITIN [Concomitant]
  25. LEVOXYL [Concomitant]
  26. CALCIUM [Concomitant]
  27. VITAMIN C [Concomitant]

REACTIONS (1)
  - Memory impairment [Unknown]
